FAERS Safety Report 4514867-X (Version None)
Quarter: 2004Q4

REPORT INFORMATION
  Report Type: 
  Country: None (occurrence: None)
  Receive Date: 20041201
  Receipt Date: 20041122
  Transmission Date: 20050328
  Serious: Yes (Death, Hospitalization)
  Sender: FDA-Public Use
  Company Number: US-JNJFOC-20041002557

PATIENT
  Sex: Female
  Weight: 62.37 kg

DRUGS (16)
  1. DURAGESIC [Suspect]
     Route: 062
     Dates: end: 20040930
  2. GEMCITABINE [Concomitant]
  3. OXALIPLATIN [Concomitant]
  4. IMDUR [Concomitant]
  5. MS CONTIN [Concomitant]
     Dosage: 15 MG DAILY PLUS 30 MG EVERY NIGHT
  6. MS CONTIN [Concomitant]
  7. REGLAN [Concomitant]
  8. GLUCOTROL [Concomitant]
  9. HUMULIN [Concomitant]
  10. HUMULIN [Concomitant]
  11. ASPIRIN [Concomitant]
  12. IRON [Concomitant]
  13. ISOSORBIDE [Concomitant]
  14. TRIAMT [Concomitant]
  15. HYDROCHLOROTHIAZIDE [Concomitant]
  16. PROTONIX [Concomitant]

REACTIONS (7)
  - CLOSTRIDIUM COLITIS [None]
  - ENDOCARDITIS [None]
  - HYPOALBUMINAEMIA [None]
  - METASTATIC NEOPLASM [None]
  - OEDEMA PERIPHERAL [None]
  - RENAL FAILURE ACUTE [None]
  - STAPHYLOCOCCAL SEPSIS [None]
